FAERS Safety Report 18879955 (Version 2)
Quarter: 2021Q2

REPORT INFORMATION
  Report Type: Spontaneous
  Country: CA (occurrence: CA)
  Receive Date: 20210211
  Receipt Date: 20210528
  Transmission Date: 20210717
  Serious: Yes (Other)
  Sender: FDA-Public Use
  Company Number: CA-PFIZER INC-2020469457

PATIENT
  Age: 77 Year
  Sex: Male

DRUGS (3)
  1. INLYTA [Suspect]
     Active Substance: AXITINIB
     Indication: PAPILLARY RENAL CELL CARCINOMA
     Dosage: 2 MG (1 CAPLET), 2X/DAY
     Route: 048
     Dates: start: 20201207
  2. KEYTRUDA [Concomitant]
     Active Substance: PEMBROLIZUMAB
     Dosage: UNK, CYCLIC
  3. INLYTA [Suspect]
     Active Substance: AXITINIB
     Dosage: 5 MG
     Route: 048

REACTIONS (4)
  - Myalgia [Unknown]
  - Cardiac valve disease [Unknown]
  - Off label use [Unknown]
  - Balance disorder [Unknown]
